FAERS Safety Report 19794526 (Version 4)
Quarter: 2022Q1

REPORT INFORMATION
  Report Type: Spontaneous
  Country: US (occurrence: US)
  Receive Date: 20210906
  Receipt Date: 20220216
  Transmission Date: 20220423
  Serious: Yes (Disabling, Other)
  Sender: FDA-Public Use
  Company Number: US-TAKEDA-2021TUS054450

PATIENT

DRUGS (52)
  1. PREVACID 24 HR [Suspect]
     Active Substance: LANSOPRAZOLE
     Indication: Dyspepsia
     Dosage: UNK
     Route: 048
     Dates: start: 1995, end: 2011
  2. PREVACID 24 HR [Suspect]
     Active Substance: LANSOPRAZOLE
     Indication: Gastrooesophageal reflux disease
     Dosage: UNK
     Route: 048
     Dates: start: 2009, end: 2019
  3. PROTONIX [Suspect]
     Active Substance: PANTOPRAZOLE SODIUM
     Indication: Dyspepsia
     Dosage: UNK
     Route: 048
     Dates: start: 1995, end: 2011
  4. PROTONIX [Suspect]
     Active Substance: PANTOPRAZOLE SODIUM
     Indication: Gastrooesophageal reflux disease
     Dosage: UNK
     Route: 048
     Dates: start: 2000
  5. PREVACID [Suspect]
     Active Substance: LANSOPRAZOLE
     Indication: Dyspepsia
     Dosage: UNK
     Route: 048
     Dates: start: 1995, end: 2011
  6. PREVACID [Suspect]
     Active Substance: LANSOPRAZOLE
     Indication: Gastrooesophageal reflux disease
     Dosage: UNK
     Route: 048
     Dates: start: 1995, end: 1996
  7. LANSOPRAZOLE [Suspect]
     Active Substance: LANSOPRAZOLE
     Indication: Gastrooesophageal reflux disease
     Dosage: UNK
     Route: 048
     Dates: start: 1996
  8. LANSOPRAZOLE [Suspect]
     Active Substance: LANSOPRAZOLE
     Indication: Dyspepsia
     Dosage: UNK
     Route: 048
  9. PANTOPRAZOLE [Suspect]
     Active Substance: PANTOPRAZOLE
     Indication: Dyspepsia
     Dosage: UNK
     Route: 048
  10. PANTOPRAZOLE [Suspect]
     Active Substance: PANTOPRAZOLE
     Indication: Gastrooesophageal reflux disease
     Dosage: 40 MILLIGRAM
     Route: 048
     Dates: start: 2014
  11. NEXIUM [Suspect]
     Active Substance: ESOMEPRAZOLE MAGNESIUM
     Indication: Dyspepsia
     Dosage: UNK
     Route: 048
     Dates: start: 1995, end: 2011
  12. NEXIUM [Suspect]
     Active Substance: ESOMEPRAZOLE MAGNESIUM
     Indication: Gastrooesophageal reflux disease
     Dosage: UNK
     Route: 048
     Dates: start: 2002, end: 2004
  13. ESOMEPRAZOLE [Suspect]
     Active Substance: ESOMEPRAZOLE
     Indication: Dyspepsia
     Dosage: UNK
     Route: 048
  14. ESOMEPRAZOLE [Suspect]
     Active Substance: ESOMEPRAZOLE
     Dosage: UNK
     Route: 048
     Dates: start: 2005
  15. NEXIUM 24HR [Suspect]
     Active Substance: ESOMEPRAZOLE MAGNESIUM
     Indication: Dyspepsia
     Dosage: UNK
     Route: 048
     Dates: start: 1995, end: 2011
  16. NEXIUM 24HR [Suspect]
     Active Substance: ESOMEPRAZOLE MAGNESIUM
     Dosage: UNK
     Route: 048
     Dates: start: 2005
  17. PRILOSEC [Suspect]
     Active Substance: OMEPRAZOLE MAGNESIUM
     Indication: Dyspepsia
     Dosage: UNK
     Route: 048
     Dates: start: 1995, end: 2011
  18. PRILOSEC [Suspect]
     Active Substance: OMEPRAZOLE MAGNESIUM
     Indication: Gastrooesophageal reflux disease
     Dosage: UNK
     Route: 048
     Dates: start: 1989, end: 1990
  19. OMEPRAZOLE [Suspect]
     Active Substance: OMEPRAZOLE
     Indication: Dyspepsia
     Dosage: UNK
     Route: 048
     Dates: start: 1989, end: 1990
  20. OMEPRAZOLE [Suspect]
     Active Substance: OMEPRAZOLE
     Indication: Gastrooesophageal reflux disease
     Dosage: UNK
     Route: 048
     Dates: start: 1995, end: 2011
  21. OMEPRAZOLE [Suspect]
     Active Substance: OMEPRAZOLE
     Dosage: UNK
     Route: 048
     Dates: start: 2005, end: 2019
  22. OMEPRAZOLE MAGNESIUM [Suspect]
     Active Substance: OMEPRAZOLE MAGNESIUM
     Indication: Dyspepsia
     Dosage: UNK
     Route: 048
     Dates: start: 1995, end: 2011
  23. OMEPRAZOLE MAGNESIUM [Suspect]
     Active Substance: OMEPRAZOLE MAGNESIUM
     Indication: Gastrooesophageal reflux disease
  24. LIPITOR [Concomitant]
     Active Substance: ATORVASTATIN CALCIUM
     Indication: Cardiac disorder
     Dosage: UNK
     Dates: start: 202111
  25. CINACALCET [Concomitant]
     Active Substance: CINACALCET
     Indication: Hyperthyroidism
     Dosage: UNK
     Dates: start: 202110
  26. HYDROMORPHONE [Concomitant]
     Active Substance: HYDROMORPHONE
     Indication: Pain
     Dosage: UNK
     Dates: start: 202110
  27. TIZANIDINE [Concomitant]
     Active Substance: TIZANIDINE
     Indication: Muscle relaxant therapy
     Dosage: UNK
     Dates: start: 202110
  28. TACROLIMUS [Concomitant]
     Active Substance: TACROLIMUS
     Indication: Transplant rejection
     Dosage: UNK
     Dates: start: 201904
  29. HUMIRA [Concomitant]
     Active Substance: ADALIMUMAB
     Indication: Psoriasis
     Dosage: UNK
     Dates: start: 2011
  30. HYOSCYAMINE [Concomitant]
     Active Substance: HYOSCYAMINE
     Indication: Irritable bowel syndrome
     Dosage: UNK
     Dates: start: 2021
  31. VIAGRA [Concomitant]
     Active Substance: SILDENAFIL CITRATE
     Indication: Erectile dysfunction
     Dosage: UNK
     Dates: start: 202107
  32. MYCOPHENOLIC ACID [Concomitant]
     Active Substance: MYCOPHENOLIC ACID
     Indication: Transplant rejection
     Dosage: UNK
     Dates: start: 201904
  33. LOSARTAN [Concomitant]
     Active Substance: LOSARTAN
     Indication: Hypertension
     Dosage: UNK
     Dates: start: 202105
  34. ATIVAN [Concomitant]
     Active Substance: LORAZEPAM
     Indication: Anxiety
     Dosage: UNK
     Dates: start: 2016, end: 2019
  35. ALEVE [Concomitant]
     Active Substance: NAPROXEN SODIUM
     Indication: Pain
     Dosage: UNK
     Dates: start: 1990
  36. TYLENOL [Concomitant]
     Active Substance: ACETAMINOPHEN
     Indication: Pain
     Dosage: UNK
     Dates: start: 1990
  37. BENADRYL [Concomitant]
     Active Substance: DIPHENHYDRAMINE HYDROCHLORIDE
     Indication: Multiple allergies
     Dosage: UNK
     Dates: start: 1990
  38. SUDAFED [Concomitant]
     Active Substance: PSEUDOEPHEDRINE HYDROCHLORIDE
     Indication: Multiple allergies
     Dosage: UNK
     Dates: start: 1990
  39. PREDNISONE [Concomitant]
     Active Substance: PREDNISONE
     Indication: Transplant rejection
     Dosage: UNK
     Dates: start: 2019
  40. ASPIRIN [Concomitant]
     Active Substance: ASPIRIN
     Indication: Cardiac disorder
     Dosage: UNK
     Dates: start: 2019
  41. SODIUM BICARBONATE [Concomitant]
     Active Substance: SODIUM BICARBONATE
     Indication: Renal tubular acidosis
     Dosage: UNK
     Dates: start: 201904
  42. PEPCID [Concomitant]
     Active Substance: FAMOTIDINE
     Dosage: UNK
  43. FAMOTIDINE [Concomitant]
     Active Substance: FAMOTIDINE
     Dosage: UNK
  44. PEPCID COMPLETE [Concomitant]
     Active Substance: CALCIUM CARBONATE\FAMOTIDINE\MAGNESIUM HYDROXIDE
     Dosage: UNK
  45. CIMETIDINE [Concomitant]
     Active Substance: CIMETIDINE
     Dosage: UNK
     Dates: start: 1990
  46. ZANTAC [Concomitant]
     Active Substance: RANITIDINE HYDROCHLORIDE
     Dosage: UNK
     Dates: start: 1990
  47. NIZATIDINE [Concomitant]
     Active Substance: NIZATIDINE
     Dosage: UNK
     Dates: start: 1990
  48. TUMS [Concomitant]
     Active Substance: CALCIUM CARBONATE
     Indication: Antacid therapy
     Dosage: UNK
     Dates: start: 1990
  49. ROLAIDS [Concomitant]
     Active Substance: CALCIUM CARBONATE\MAGNESIUM HYDROXIDE
     Indication: Antacid therapy
     Dosage: UNK
     Dates: start: 1990
  50. ALKA-SELTZER [Concomitant]
     Active Substance: ANHYDROUS CITRIC ACID\ASPIRIN\SODIUM BICARBONATE
     Indication: Antacid therapy
     Dosage: UNK
     Dates: start: 1990
  51. PEPTO-BISMOL [Concomitant]
     Active Substance: BISMUTH SUBSALICYLATE
     Indication: Antacid therapy
     Dosage: UNK
     Dates: start: 1990
  52. VITAMIN D NOS [Concomitant]
     Active Substance: VITAMIN D NOS
     Indication: Vitamin D deficiency
     Dosage: UNK
     Dates: start: 2019

REACTIONS (6)
  - Chronic kidney disease [Unknown]
  - Acute kidney injury [Unknown]
  - Anxiety [Unknown]
  - Depression [Unknown]
  - Renal failure [Unknown]
  - End stage renal disease [Not Recovered/Not Resolved]

NARRATIVE: CASE EVENT DATE: 20110201
